FAERS Safety Report 4425228-6 (Version None)
Quarter: 2004Q3

REPORT INFORMATION
  Report Type: 
  Country: None (occurrence: None)
  Receive Date: 20040813
  Receipt Date: 20040803
  Transmission Date: 20050211
  Serious: Yes (Other)
  Sender: FDA-Public Use
  Company Number: US-JNJFOC-20040305622

PATIENT
  Sex: Female
  Weight: 86.18 kg

DRUGS (27)
  1. REMICADE [Suspect]
     Indication: RHEUMATOID ARTHRITIS
     Route: 042
  2. METHOTREXATE [Concomitant]
  3. AMBIEN [Concomitant]
  4. TARKA [Concomitant]
  5. TARKA [Concomitant]
     Indication: BLOOD PRESSURE
  6. HYDROCHLOROTHIAZIDE [Concomitant]
  7. NEXIUM [Concomitant]
  8. ASPIRIN [Concomitant]
  9. ALEGRA [Concomitant]
  10. FLEXORIL [Concomitant]
  11. FOLIC ACID [Concomitant]
  12. CELEXA [Concomitant]
  13. CRESTOR [Concomitant]
  14. CLARITIN [Concomitant]
  15. PREDNISONE [Concomitant]
     Indication: CONDITION AGGRAVATED
  16. KLONOPIN [Concomitant]
  17. AXERT [Concomitant]
     Dosage: PRN
  18. GLUCOSAMINE CHONDROITIN [Concomitant]
  19. GLUCOSAMINE CHONDROITIN [Concomitant]
  20. GLUCOSAMINE CHONDROITIN [Concomitant]
  21. GLUCOSAMINE CHONDROITIN [Concomitant]
  22. CALCIUM WITH VITAMIN D [Concomitant]
  23. CALCIUM WITH VITAMIN D [Concomitant]
  24. CALCIUM WITH VITAMIN D [Concomitant]
  25. FORTEO [Concomitant]
     Route: 050
  26. DARVOCET [Concomitant]
  27. DARVOCET [Concomitant]

REACTIONS (10)
  - ATHEROSCLEROSIS [None]
  - BLOOD TRIGLYCERIDES INCREASED [None]
  - CALCINOSIS [None]
  - CAROTID ARTERY OCCLUSION [None]
  - CEREBRAL ATROPHY [None]
  - LACUNAR INFARCTION [None]
  - LOW DENSITY LIPOPROTEIN INCREASED [None]
  - NERVOUS SYSTEM DISORDER [None]
  - NUCLEAR MAGNETIC RESONANCE IMAGING BRAIN ABNORMAL [None]
  - TRANSIENT ISCHAEMIC ATTACK [None]
